FAERS Safety Report 6447216-0 (Version None)
Quarter: 2009Q4

REPORT INFORMATION
  Report Type: 
  Country: None (occurrence: None)
  Receive Date: 20091119
  Receipt Date: 20091106
  Transmission Date: 20100525
  Serious: Yes (Hospitalization, Other)
  Sender: FDA-Public Use
  Company Number: BR-MEDIMMUNE-MEDI-0008359

PATIENT
  Sex: Female
  Weight: 7.5 kg

DRUGS (2)
  1. SYNAGIS [Suspect]
     Dosage: UNKNOWN
     Dates: start: 20081105, end: 20090101
  2. SYNAGIS [Suspect]
     Dosage: UNKNOWN
     Dates: start: 20090309, end: 20091001

REACTIONS (13)
  - BRONCHITIS [None]
  - COUGH [None]
  - EAR INFECTION [None]
  - HYPOPHAGIA [None]
  - INFLUENZA [None]
  - NASOPHARYNGITIS [None]
  - PNEUMONIA [None]
  - PYREXIA [None]
  - RHINITIS [None]
  - RHINORRHOEA [None]
  - SINUSITIS [None]
  - SNEEZING [None]
  - VIRAL INFECTION [None]
